FAERS Safety Report 7627367-5 (Version None)
Quarter: 2011Q3

REPORT INFORMATION
  Report Type: 
  Country: None (occurrence: None)
  Receive Date: 20110721
  Receipt Date: 20110711
  Transmission Date: 20111222
  Serious: Yes (Hospitalization)
  Sender: FDA-Public Use
  Company Number: CA-ELI_LILLY_AND_COMPANY-CA201107003379

PATIENT
  Age: 63 Year
  Sex: Female

DRUGS (18)
  1. BIAXIN [Concomitant]
  2. FORTEO [Suspect]
     Dosage: 20 UG, QD
     Route: 058
     Dates: start: 20101116, end: 20101120
  3. CORTEF [Concomitant]
  4. NEXIUM [Concomitant]
  5. LACTAID [Concomitant]
  6. VITAMIN B-12 [Concomitant]
  7. MULTI-VITAMIN [Concomitant]
  8. FORTEO [Suspect]
     Indication: OSTEOPOROSIS
     Dosage: 20 UG, QD
     Route: 058
     Dates: start: 20100513, end: 20101103
  9. ESTRACE [Concomitant]
  10. CALCIUM CARBONATE [Concomitant]
  11. SYNTHROID [Concomitant]
  12. ALVESCO [Concomitant]
  13. VITAMIN D [Concomitant]
  14. NOVO-HYDRAZIDE [Concomitant]
  15. FORTEO [Suspect]
     Dosage: 20 UG, QD
     Route: 058
     Dates: start: 20101125
  16. FORTEO [Suspect]
     Dosage: 20 UG, QD
     Route: 058
  17. ADVAIR DISKUS 100/50 [Concomitant]
  18. FERROUS SULFATE TAB [Concomitant]

REACTIONS (2)
  - DIARRHOEA [None]
  - DIARRHOEA HAEMORRHAGIC [None]
